FAERS Safety Report 9303529 (Version 1)
Quarter: 2013Q2

REPORT INFORMATION
  Report Type: Spontaneous
  Country: US (occurrence: None)
  Receive Date: 20130516
  Receipt Date: 20130516
  Transmission Date: 20140414
  Serious: Yes (Disabling, Other)
  Sender: FDA-Public Use
  Company Number: 1305-609

PATIENT
  Age: 67 Year
  Sex: Male

DRUGS (1)
  1. EYELEA (AFLIBERCEPT) (AFLIBERCEPT) [Suspect]
     Indication: AGE-RELATED MACULAR DEGENERATION
     Dosage: 2MG INTRAVITREAL
     Dates: start: 20120220, end: 20130506

REACTIONS (3)
  - Iritis [None]
  - Vitritis [None]
  - Visual acuity reduced [None]
